FAERS Safety Report 20094800 (Version 1)
Quarter: 2021Q4

REPORT INFORMATION
  Report Type: Spontaneous
  Country: US (occurrence: US)
  Receive Date: 20211122
  Receipt Date: 20211122
  Transmission Date: 20220303
  Serious: No
  Sender: FDA-Public Use
  Company Number: CID000000000019615

PATIENT
  Age: 68 Year
  Sex: Male

DRUGS (2)
  1. COPAXONE [Suspect]
     Active Substance: GLATIRAMER ACETATE
     Indication: Multiple sclerosis
     Route: 065
  2. KESIMPTA [Concomitant]
     Active Substance: OFATUMUMAB

REACTIONS (1)
  - Dyspnoea [Unknown]
